FAERS Safety Report 8564588-1 (Version None)
Quarter: 2012Q3

REPORT INFORMATION
  Report Type: 
  Country: None (occurrence: None)
  Receive Date: 20120727
  Receipt Date: 20120727
  Transmission Date: 20120928
  Serious: No
  Sender: FDA-Public Use
  Company Number: None

PATIENT
  Age: 57 Year
  Sex: Female
  Weight: 56.246 kg

DRUGS (1)
  1. CYMBALTA [Suspect]
     Indication: NERVE COMPRESSION
     Dosage: 30MG 1 AT NIGHT
     Dates: start: 20120719, end: 20120719

REACTIONS (4)
  - FORMICATION [None]
  - ANXIETY [None]
  - CHEST DISCOMFORT [None]
  - MIDDLE INSOMNIA [None]
